FAERS Safety Report 8116009-0 (Version None)
Quarter: 2012Q1

REPORT INFORMATION
  Report Type: 
  Country: None (occurrence: None)
  Receive Date: 20120206
  Receipt Date: 20120124
  Transmission Date: 20120608
  Serious: Yes (Other)
  Sender: FDA-Public Use
  Company Number: US-ALEXION PHARMACEUTICALS INC.-A201200185

PATIENT
  Sex: Male

DRUGS (1)
  1. SOLIRIS [Suspect]
     Indication: PAROXYSMAL NOCTURNAL HAEMOGLOBINURIA
     Dosage: UNK
     Route: 042

REACTIONS (7)
  - CONFUSIONAL STATE [None]
  - PYREXIA [None]
  - HAEMOPTYSIS [None]
  - PNEUMONIA [None]
  - DYSPNOEA [None]
  - HAEMOGLOBINURIA [None]
  - FATIGUE [None]
